FAERS Safety Report 22084879 (Version 4)
Quarter: 2023Q1

REPORT INFORMATION
  Report Type: Report from Study
  Country: ES (occurrence: ES)
  Receive Date: 20230310
  Receipt Date: 20230331
  Transmission Date: 20230418
  Serious: Yes (Life-Threatening, Hospitalization)
  Sender: FDA-Public Use
  Company Number: ES-PFIZER INC-PV202300044290

PATIENT
  Age: 74 Year
  Sex: Male
  Weight: 74 kg

DRUGS (11)
  1. BEVACIZUMAB [Suspect]
     Active Substance: BEVACIZUMAB
     Indication: Colorectal cancer metastatic
     Dosage: 358 MG, CYCLIC (EVERY 2 WEEKS)
     Route: 042
     Dates: start: 20230222, end: 20230222
  2. LEUCOVORIN [Suspect]
     Active Substance: LEUCOVORIN
     Indication: Colorectal cancer metastatic
     Dosage: 748 MG, CYCLIC (EVERY 2 WEEKS)
     Route: 042
     Dates: start: 20230222, end: 20230222
  3. FLUOROURACIL [Suspect]
     Active Substance: FLUOROURACIL
     Indication: Colorectal cancer metastatic
     Dosage: 748 MG, CYCLIC (EVERY 2 WEEKS)
     Route: 040
     Dates: start: 20230222, end: 20230222
  4. FLUOROURACIL [Suspect]
     Active Substance: FLUOROURACIL
     Dosage: 4488 MG, CYCLIC (EVERY 2 WEEKS), IV INFUSION
     Route: 042
     Dates: start: 20230222, end: 20230224
  5. OXALIPLATIN [Suspect]
     Active Substance: OXALIPLATIN
     Indication: Colorectal cancer metastatic
     Dosage: 158.95 MG, CYCLIC (EVERY 2 WEEKS)
     Route: 042
     Dates: start: 20230222, end: 20230222
  6. ATORVASTATIN [Concomitant]
     Active Substance: ATORVASTATIN
     Indication: Diabetes mellitus
     Dosage: UNK
     Dates: start: 2018
  7. FERBISOL [Concomitant]
     Indication: Anaemia
     Dosage: UNK
     Dates: start: 2022
  8. DUTASTERIDE\TAMSULOSIN [Concomitant]
     Active Substance: DUTASTERIDE\TAMSULOSIN
     Indication: Benign prostatic hyperplasia
     Dosage: UNK
     Dates: start: 2020
  9. SINTROM [Concomitant]
     Active Substance: ACENOCOUMAROL
     Indication: Atrial fibrillation
     Dosage: UNK
     Dates: start: 2017
  10. NOVORAPID [Concomitant]
     Active Substance: INSULIN ASPART
     Indication: Diabetes mellitus
     Dosage: UNK
     Dates: start: 2013
  11. METFORMIN HYDROCHLORIDE\SITAGLIPTIN PHOSPHATE [Concomitant]
     Active Substance: METFORMIN HYDROCHLORIDE\SITAGLIPTIN PHOSPHATE
     Indication: Diabetes mellitus
     Dosage: UNK
     Dates: start: 2013

REACTIONS (1)
  - Septic shock [Recovered/Resolved]

NARRATIVE: CASE EVENT DATE: 20230302
